FAERS Safety Report 26158635 (Version 1)
Quarter: 2025Q4

REPORT INFORMATION
  Report Type: Spontaneous
  Country: US (occurrence: US)
  Receive Date: 20251215
  Receipt Date: 20251215
  Transmission Date: 20260117
  Serious: No
  Sender: BRECKENRIDGE PHARMACEUTICAL, INC.
  Company Number: US-Breckenridge Pharmaceutical, Inc.-2190592

PATIENT
  Age: 59 Year
  Sex: Male
  Weight: 63.636 kg

DRUGS (4)
  1. ASENAPINE [Suspect]
     Active Substance: ASENAPINE
     Indication: Anxiety
  2. ROSUVASTATIN [Concomitant]
     Active Substance: ROSUVASTATIN
  3. LITHIUM CARBONATE [Concomitant]
     Active Substance: LITHIUM CARBONATE
     Route: 061
  4. COENZYME Q10 [Concomitant]
     Active Substance: DIETARY SUPPLEMENT\UBIDECARENONE

REACTIONS (2)
  - Weight increased [Unknown]
  - Blood cholesterol increased [Unknown]
